FAERS Safety Report 17680418 (Version 2)
Quarter: 2022Q1

REPORT INFORMATION
  Report Type: Spontaneous
  Country: US (occurrence: None)
  Receive Date: 20200417
  Receipt Date: 20220331
  Transmission Date: 20220423
  Serious: No
  Sender: FDA-Public Use
  Company Number: US-NEOPHARMA INC-000314

PATIENT
  Age: 24 Year
  Sex: Female

DRUGS (1)
  1. AUGMENTIN [Suspect]
     Active Substance: AMOXICILLIN\CLAVULANATE POTASSIUM
     Indication: Product used for unknown indication

REACTIONS (5)
  - Ear infection [Unknown]
  - Pain in jaw [Unknown]
  - Neck pain [Unknown]
  - Insomnia [Unknown]
  - Feeding disorder [Unknown]
